FAERS Safety Report 9665829 (Version 2)
Quarter: 2013Q4

REPORT INFORMATION
  Report Type: Spontaneous
  Country: JP (occurrence: JP)
  Receive Date: 20131104
  Receipt Date: 20131220
  Transmission Date: 20140711
  Serious: Yes (Disabling, Other)
  Sender: FDA-Public Use
  Company Number: JP-ASTELLAS-2013JP011966

PATIENT
  Age: 17 Year
  Sex: Male
  Weight: 50.1 kg

DRUGS (25)
  1. PROGRAF [Suspect]
     Indication: IMMUNOSUPPRESSANT DRUG THERAPY
     Dosage: 2.5 MG, UNKNOWN/D
     Route: 050
     Dates: start: 20121104, end: 20121104
  2. PROGRAF [Suspect]
     Dosage: 0.5 MG, BID
     Route: 050
     Dates: start: 20121106, end: 20121107
  3. PROGRAF [Suspect]
     Dosage: UNK
     Route: 050
     Dates: start: 20121108, end: 20121109
  4. PROGRAF [Suspect]
     Dosage: UNK
     Route: 050
     Dates: start: 20121110, end: 20121110
  5. PROGRAF [Suspect]
     Dosage: UNK
     Route: 048
     Dates: start: 20121111, end: 20121111
  6. PROGRAF [Suspect]
     Dosage: 1.5 MG, UID/QD
     Route: 048
     Dates: start: 20121113, end: 20121113
  7. PROGRAF [Suspect]
     Dosage: 1.5 MG, BID
     Route: 048
     Dates: start: 20121114, end: 20121114
  8. PROGRAF [Suspect]
     Dosage: UNK
     Route: 048
     Dates: start: 20121115, end: 20121115
  9. PROGRAF [Suspect]
     Dosage: 1.5 MG, BID
     Route: 048
     Dates: start: 20121116, end: 20121116
  10. PROGRAF [Suspect]
     Dosage: UNK
     Route: 048
     Dates: start: 20121117, end: 20121117
  11. PROGRAF [Suspect]
     Dosage: 2.5 MG, BID
     Route: 048
     Dates: start: 20121118, end: 20121118
  12. PROGRAF [Suspect]
     Dosage: 3.5 MG, BID
     Route: 048
     Dates: start: 20121119, end: 20121119
  13. PROGRAF [Suspect]
     Indication: IMMUNOSUPPRESSANT DRUG THERAPY
     Dosage: UNK
     Route: 050
     Dates: start: 20121108, end: 20121109
  14. PROGRAF [Suspect]
     Dosage: UNK
     Route: 050
     Dates: start: 20121110, end: 20121110
  15. PROGRAF [Suspect]
     Dosage: UNK
     Route: 048
     Dates: start: 20121111, end: 20121111
  16. PROGRAF [Suspect]
     Dosage: UNK
     Route: 048
     Dates: start: 20121115, end: 20121115
  17. PROGRAF [Suspect]
     Dosage: UNK
     Route: 048
     Dates: start: 20121117, end: 20121117
  18. CORTICOSTEROID NOS [Concomitant]
     Indication: IMMUNOSUPPRESSANT DRUG THERAPY
     Dosage: UNK
     Route: 065
     Dates: start: 20121104
  19. SODIUM BENZOATE [Concomitant]
     Route: 048
  20. L-ARGININE HYDROCHLORIDE [Concomitant]
     Route: 065
  21. CELLCEPT                           /01275102/ [Concomitant]
     Dosage: 500 MG, UNKNOWN/D
     Route: 048
     Dates: start: 20121105
  22. CELLCEPT                           /01275102/ [Concomitant]
     Dosage: 1000 MG, UNKNOWN/D
     Route: 048
  23. CELLCEPT                           /01275102/ [Concomitant]
     Dosage: 1500 MG, UNKNOWN/D
     Route: 048
  24. SIMULECT [Concomitant]
     Dosage: UNK
     Route: 065
     Dates: start: 20121106, end: 20121106
  25. SIMULECT [Concomitant]
     Route: 065

REACTIONS (4)
  - Drug ineffective [Unknown]
  - Intentional drug misuse [Unknown]
  - Liver transplant rejection [Recovering/Resolving]
  - Renal failure acute [Recovered/Resolved]
